FAERS Safety Report 16721343 (Version 1)
Quarter: 2019Q3

REPORT INFORMATION
  Report Type: Spontaneous
  Country: GB (occurrence: GB)
  Receive Date: 20190820
  Receipt Date: 20190820
  Transmission Date: 20191005
  Serious: Yes (Hospitalization)
  Sender: FDA-Public Use
  Company Number: GB-JNJFOC-20190816993

PATIENT
  Age: 65 Year
  Sex: Male

DRUGS (10)
  1. EZETIMIBE. [Concomitant]
     Active Substance: EZETIMIBE
     Route: 065
  2. ACETYLSALICYLIC ACID [Concomitant]
     Active Substance: ASPIRIN
  3. ISOSORBIDE. [Concomitant]
     Active Substance: ISOSORBIDE
     Route: 065
  4. AMLODIPINE [Concomitant]
     Active Substance: AMLODIPINE BESYLATE
     Route: 065
  5. LANSOPRAZOLE. [Concomitant]
     Active Substance: LANSOPRAZOLE
  6. ATENOLOL. [Concomitant]
     Active Substance: ATENOLOL
  7. LOSARTAN. [Concomitant]
     Active Substance: LOSARTAN
  8. DOXAZOSIN [Concomitant]
     Active Substance: DOXAZOSIN MESYLATE
     Route: 065
  9. GLICLAZIDE [Concomitant]
     Active Substance: GLICLAZIDE
  10. CANAGLIFLOZIN [Suspect]
     Active Substance: CANAGLIFLOZIN
     Indication: DIABETES MELLITUS
     Route: 048
     Dates: end: 20190515

REACTIONS (4)
  - Peripheral artery occlusion [Recovering/Resolving]
  - Pain in extremity [Unknown]
  - Dry gangrene [Not Recovered/Not Resolved]
  - Stenosis [Unknown]
